FAERS Safety Report 8848554 (Version 1)
Quarter: 2012Q4

REPORT INFORMATION
  Report Type: 
  Country: US (occurrence: US)
  Receive Date: 20121018
  Receipt Date: 20121018
  Transmission Date: 20130627
  Serious: Yes (Other)
  Sender: FDA-Public Use
  Company Number: US-GLAXOSMITHKLINE-A0993136A

PATIENT
  Age: 86 Year
  Sex: Male

DRUGS (8)
  1. PROMACTA [Suspect]
     Indication: IDIOPATHIC THROMBOCYTOPENIC PURPURA
     Dosage: 75MG Per day
     Route: 048
     Dates: start: 20120606, end: 20120914
  2. CLOBETASOL [Suspect]
  3. ACETYLSALICYLIC ACID [Concomitant]
     Dosage: 81MG Per day
  4. NEXIUM [Concomitant]
     Dosage: 20MG Per day
     Route: 048
  5. TOPROL XL [Concomitant]
     Indication: HYPERTENSION
     Dosage: 25MG Per day
     Route: 048
  6. ATIVAN [Concomitant]
     Dosage: 160MG Per day
     Route: 048
  7. CIALIS [Concomitant]
     Dosage: 20MG As required
     Route: 048
  8. NORVASC [Concomitant]
     Dosage: 5MG Per day
     Route: 048

REACTIONS (4)
  - Oedema peripheral [Recovering/Resolving]
  - Limb discomfort [Unknown]
  - Rash [Not Recovered/Not Resolved]
  - Drug ineffective [Unknown]
